FAERS Safety Report 14186450 (Version 1)
Quarter: 2017Q4

REPORT INFORMATION
  Report Type: Spontaneous
  Country: FR (occurrence: FR)
  Receive Date: 20171114
  Receipt Date: 20171114
  Transmission Date: 20180321
  Serious: Yes (Hospitalization)
  Sender: FDA-Public Use
  Company Number: FR-MERCK KGAA-2033965

PATIENT
  Age: 72 Year
  Sex: Female

DRUGS (6)
  1. SELECTOL [Concomitant]
     Active Substance: CELIPROLOL
  2. TAHOR [Concomitant]
     Active Substance: ATORVASTATIN CALCIUM
  3. AMLOR [Concomitant]
     Active Substance: AMLODIPINE BESYLATE
  4. COTAREG [Concomitant]
     Active Substance: HYDROCHLOROTHIAZIDE\VALSARTAN
  5. NOVOTHYROX [Suspect]
     Active Substance: LEVOTHYROXINE SODIUM
     Indication: POST PROCEDURAL HYPOTHYROIDISM
     Dates: start: 201703
  6. HYPERIUM [Concomitant]
     Active Substance: RILMENIDINE PHOSPHATE

REACTIONS (17)
  - Alopecia [Unknown]
  - Vertigo [Unknown]
  - Fall [Unknown]
  - Amnesia [Unknown]
  - Mobility decreased [Unknown]
  - Dry skin [Unknown]
  - Pollakiuria [Unknown]
  - Urinary incontinence [Unknown]
  - Muscle spasms [Unknown]
  - Infarction [Unknown]
  - Fatigue [Unknown]
  - Pain in extremity [Unknown]
  - Hypothyroidism [Unknown]
  - Depression [Unknown]
  - Dysstasia [Unknown]
  - Feeling cold [Unknown]
  - Weight increased [Unknown]

NARRATIVE: CASE EVENT DATE: 201707
